FAERS Safety Report 21536184 (Version 3)
Quarter: 2023Q1

REPORT INFORMATION
  Report Type: Spontaneous
  Country: US (occurrence: US)
  Receive Date: 20221101
  Receipt Date: 20230201
  Transmission Date: 20230418
  Serious: No
  Sender: FDA-Public Use
  Company Number: US-JNJFOC-20221047325

PATIENT
  Age: 61 Year
  Sex: Female
  Weight: 86 kg

DRUGS (2)
  1. STELARA [Suspect]
     Active Substance: USTEKINUMAB
     Indication: Crohn^s disease
     Route: 058
  2. STELARA [Suspect]
     Active Substance: USTEKINUMAB
     Route: 058

REACTIONS (5)
  - Product label issue [Unknown]
  - Device issue [Unknown]
  - Product dose omission issue [Unknown]
  - Needle issue [Unknown]
  - Off label use [Unknown]

NARRATIVE: CASE EVENT DATE: 20220101
